FAERS Safety Report 23938887 (Version 1)
Quarter: 2024Q2

REPORT INFORMATION
  Report Type: Spontaneous
  Country: GB (occurrence: GB)
  Receive Date: 20240604
  Receipt Date: 20240604
  Transmission Date: 20240715
  Serious: Yes (Other)
  Sender: FDA-Public Use
  Company Number: GB-MHRA-TPP9287647C710249YC1716477934212

PATIENT
  Age: 45 Year
  Sex: Female
  Weight: 59 kg

DRUGS (24)
  1. DOXYCYCLINE [Suspect]
     Active Substance: DOXYCYCLINE\DOXYCYCLINE HYCLATE
     Indication: Ill-defined disorder
     Dosage: UNK
     Route: 048
     Dates: start: 20170828
  2. METOCLOPRAMIDE [Concomitant]
     Active Substance: METOCLOPRAMIDE
     Indication: Vomiting
     Dosage: 1 DOSAGE FORM, AS NECESSARY (TAKE ONE TABLET THREE TIMES DAILY WHEN REQUIRED FOR NAUSEA AND VOMITING
     Route: 065
     Dates: start: 20240502, end: 20240507
  3. METOCLOPRAMIDE [Concomitant]
     Active Substance: METOCLOPRAMIDE
     Indication: Nausea
  4. SUMATRIPTAN [Concomitant]
     Active Substance: SUMATRIPTAN
     Indication: Headache
     Dosage: 1 DOSAGE FORM (ONE TABLET AT ONSET OF HEADACHE, IF HEADACHE GETS BETTER BUT THEN RECURS TAKE A 2ND T
     Route: 065
     Dates: start: 20240515
  5. ZOLPIDEM [Concomitant]
     Active Substance: ZOLPIDEM TARTRATE
     Indication: Ill-defined disorder
     Dosage: 1 DOSAGE FORM, PM (AT NIGHT)
     Route: 065
     Dates: start: 20240520
  6. DIAZEPAM [Concomitant]
     Active Substance: DIAZEPAM
     Indication: Ill-defined disorder
     Dosage: UNK (ONE OR TWO  TABLET AS REQUIRED, MAXIMUM THREE TIMES A DAY)
     Route: 065
     Dates: start: 20240515
  7. AMITRIPTYLINE HYDROCHLORIDE [Concomitant]
     Active Substance: AMITRIPTYLINE HYDROCHLORIDE
     Indication: Ill-defined disorder
     Dosage: UNK, PM (TAKE ONE AT NIGHT CAN INCREASE TO TWO AT NIGHT AFTER 3 DAYS)
     Route: 065
     Dates: start: 20240520
  8. CHOLECALCIFEROL [Concomitant]
     Active Substance: CHOLECALCIFEROL
     Indication: Ill-defined disorder
     Dosage: 1 DOSAGE FORM, (6 WEEK)
     Route: 065
     Dates: start: 20240312, end: 20240423
  9. CYCLIZINE [Concomitant]
     Active Substance: CYCLIZINE
     Indication: Ill-defined disorder
     Dosage: 1 DOSAGE FORM, AS NECESSARY (TAKE ONE UP TO  THREE TIMES A DAY ORALLY WHEN R...)
     Route: 048
     Dates: start: 20240318, end: 20240415
  10. ATENOLOL [Concomitant]
     Active Substance: ATENOLOL
     Indication: Anxiety
     Dosage: 1 DOSAGE FORM, QD (TAKE ONE DAILY)
     Route: 065
     Dates: start: 20240520
  11. ATENOLOL [Concomitant]
     Active Substance: ATENOLOL
     Indication: Palpitations
  12. COCODAMOL [Concomitant]
     Active Substance: ACETAMINOPHEN\CODEINE PHOSPHATE
     Indication: Ill-defined disorder
     Dosage: UNK, QID (TAKE 1 OR 2 4 TIMES/DAY)
     Route: 065
     Dates: start: 20180927
  13. MORPHINE SULFATE [Concomitant]
     Active Substance: MORPHINE SULFATE
     Indication: Pain
     Dosage: UNK (2.5ML TO 5ML EVERY 4-6 HOURS FOR ACUTE SEVERE PAIN)
     Route: 065
     Dates: start: 20230714
  14. ALBUTEROL [Concomitant]
     Active Substance: ALBUTEROL
     Indication: Ill-defined disorder
     Dosage: 2 DOSAGE FORM, AS NECESSARY
     Route: 055
     Dates: start: 20190114
  15. BECLOMETHASONE DIPROPIONATE [Concomitant]
     Active Substance: BECLOMETHASONE DIPROPIONATE
     Indication: Ill-defined disorder
     Dosage: 2 DOSAGE FORM, BID (INHALE 2 DOSES TWICE DAILY)
     Route: 055
     Dates: start: 20190114
  16. VORTIOXETINE [Concomitant]
     Active Substance: VORTIOXETINE
     Indication: Ill-defined disorder
     Dosage: 1 DOSAGE FORM, PM (AT NIGHT)
     Route: 065
     Dates: start: 20230601
  17. TAMOXIFEN [Concomitant]
     Active Substance: TAMOXIFEN
     Indication: Ill-defined disorder
     Dosage: 1 DOSAGE FORM, QD
     Route: 065
     Dates: start: 20230613
  18. QUETIAPINE [Concomitant]
     Active Substance: QUETIAPINE
     Indication: Ill-defined disorder
     Dosage: UNK, BID (TAKE 2 IN THE MORNING (50MG) AND 3 AT NIGHT (75...)
     Route: 065
     Dates: start: 20231031
  19. GOSERELIN [Concomitant]
     Active Substance: GOSERELIN
     Indication: Ill-defined disorder
     Dosage: UNK (INSERT ONE IMPLANT SC LOWER ANTERIOR ABDOMEN E...)
     Route: 058
     Dates: start: 20240307
  20. EXEMESTANE [Concomitant]
     Active Substance: EXEMESTANE
     Indication: Ill-defined disorder
     Dosage: 1 DOSAGE FORM, QD
     Route: 065
     Dates: start: 20240307
  21. Adcal [Concomitant]
     Indication: Ill-defined disorder
     Dosage: 1 DOSAGE FORM, BID (TAKE ONE TWICE DAILY)
     Route: 065
     Dates: start: 20240312
  22. ZOPICLONE [Concomitant]
     Active Substance: ZOPICLONE
     Indication: Ill-defined disorder
     Dosage: 1 DOSAGE FORM, AS NECESSARY (TAKE ONE AT NIGHT WHEN REQUIRED)
     Route: 065
     Dates: start: 20240402
  23. MIRTAZAPINE [Concomitant]
     Active Substance: MIRTAZAPINE
     Indication: Ill-defined disorder
     Dosage: 1 DOSAGE FORM, PM (AT NIGHT)
     Route: 065
     Dates: start: 20240402
  24. VENLAFAXINE [Concomitant]
     Active Substance: VENLAFAXINE HYDROCHLORIDE
     Indication: Ill-defined disorder
     Dosage: 1 DOSAGE FORM, BID (12 HOURS)
     Route: 065
     Dates: start: 20240402

REACTIONS (2)
  - Swelling [Recovered/Resolved]
  - Pain [Unknown]

NARRATIVE: CASE EVENT DATE: 20170828
